FAERS Safety Report 11195268 (Version 2)
Quarter: 2015Q2

REPORT INFORMATION
  Report Type: Spontaneous
  Country: JP (occurrence: JP)
  Receive Date: 20150617
  Receipt Date: 20150625
  Transmission Date: 20150821
  Serious: Yes (Other)
  Sender: FDA-Public Use
  Company Number: JP-TEVA-2015-JP-000813J

PATIENT
  Age: 86 Year
  Sex: Female

DRUGS (2)
  1. MINOCYCLINE HYDROCHLORIDE FOR I.V. INFUSION 100MG ^TAIYO^ [Suspect]
     Active Substance: MINOCYCLINE HYDROCHLORIDE
     Indication: ARTHRITIS
     Dosage: 100 MILLIGRAM DAILY;
     Route: 041
     Dates: start: 20150525, end: 20150525
  2. LOXONIN [Concomitant]
     Active Substance: LOXOPROFEN SODIUM
     Route: 048
     Dates: start: 20150521

REACTIONS (3)
  - Headache [Recovered/Resolved]
  - Blood pressure increased [Recovered/Resolved]
  - Chest discomfort [Recovered/Resolved]

NARRATIVE: CASE EVENT DATE: 20150525
